FAERS Safety Report 6232336-6 (Version None)
Quarter: 2009Q2

REPORT INFORMATION
  Report Type: 
  Country: None (occurrence: None)
  Receive Date: 20090617
  Receipt Date: 20090612
  Transmission Date: 20091009
  Serious: Yes (Death)
  Sender: FDA-Public Use
  Company Number: JP-WYE-H09581809

PATIENT
  Age: 69 Year
  Sex: Male

DRUGS (10)
  1. ZOSYN [Suspect]
     Indication: PNEUMONIA
     Route: 041
     Dates: start: 20090513, end: 20090516
  2. CLEANAL [Concomitant]
     Route: 048
  3. MUCODYNE [Concomitant]
     Route: 048
  4. NITROGLYCERIN ^DAK^ [Concomitant]
     Dates: start: 20090515, end: 20090519
  5. TORSEMIDE [Concomitant]
     Route: 048
  6. THEO-DUR [Concomitant]
     Route: 048
  7. CARDENALIN [Concomitant]
     Route: 048
  8. NORVASC [Concomitant]
     Route: 048
     Dates: start: 20090515, end: 20090519
  9. OMEGACIN [Concomitant]
     Indication: PNEUMONIA
     Route: 041
     Dates: start: 20090517, end: 20090518
  10. MUCOSTA [Concomitant]
     Route: 048

REACTIONS (1)
  - RENAL FAILURE ACUTE [None]
